FAERS Safety Report 18041840 (Version 1)
Quarter: 2020Q3

REPORT INFORMATION
  Report Type: Spontaneous
  Country: DE (occurrence: DE)
  Receive Date: 20200720
  Receipt Date: 20200720
  Transmission Date: 20201103
  Serious: Yes (Hospitalization)
  Sender: FDA-Public Use
  Company Number: DE-TEVA-2020-DE-1801242

PATIENT
  Age: 17 Year
  Sex: Female
  Weight: 52 kg

DRUGS (2)
  1. CLOMIPRAMIN RETARD [Suspect]
     Active Substance: CLOMIPRAMINE HYDROCHLORIDE
     Indication: SUICIDAL IDEATION
     Dosage: DAILY DOSE: 75 MG MILLGRAM(S) EVERY 4 TOTAL
     Route: 048
     Dates: start: 20200510
  2. CLOMIPRAMIN RETARD [Concomitant]
     Active Substance: CLOMIPRAMINE HYDROCHLORIDE
     Indication: PERSONALITY DISORDER
     Dosage: 112 MILLIGRAM DAILY;
     Route: 048

REACTIONS (3)
  - Intentional overdose [Recovered/Resolved]
  - Psychomotor retardation [Recovered/Resolved]
  - Toxicity to various agents [Recovered/Resolved]

NARRATIVE: CASE EVENT DATE: 20200510
